FAERS Safety Report 7898149-4 (Version None)
Quarter: 2011Q4

REPORT INFORMATION
  Report Type: 
  Country: None (occurrence: None)
  Receive Date: 20111107
  Receipt Date: 20111031
  Transmission Date: 20120403
  Serious: Yes (Other)
  Sender: FDA-Public Use
  Company Number: FR-MERCK-1111FRA00004

PATIENT
  Age: 61 Year
  Sex: Female

DRUGS (2)
  1. STATIN (UNSPECIFIED) [Concomitant]
     Route: 065
  2. JANUVIA [Suspect]
     Route: 048
     Dates: start: 20110401, end: 20110701

REACTIONS (1)
  - ARTHRALGIA [None]
